FAERS Safety Report 6341232-5 (Version None)
Quarter: 2009Q3

REPORT INFORMATION
  Report Type: 
  Country: None (occurrence: None)
  Receive Date: 20090904
  Receipt Date: 20090625
  Transmission Date: 20100115
  Serious: No
  Sender: FDA-Public Use
  Company Number: A0793793A

PATIENT
  Sex: Male

DRUGS (5)
  1. REQUIP [Suspect]
     Indication: PARKINSON'S DISEASE
     Dosage: 2MG THREE TIMES PER DAY
     Route: 048
     Dates: start: 20050101
  2. REQUIP [Suspect]
     Dosage: 3MG AT NIGHT
  3. REQUIP [Suspect]
     Dosage: 3MG AT NIGHT
  4. CARBIDOPA-LEVODOPA [Concomitant]
  5. COMTAN [Concomitant]

REACTIONS (1)
  - OEDEMA PERIPHERAL [None]
